FAERS Safety Report 4879490-6 (Version None)
Quarter: 2005Q4

REPORT INFORMATION
  Report Type: 
  Country: None (occurrence: None)
  Receive Date: 20051209
  Receipt Date: 20050930
  Transmission Date: 20060501
  Serious: Yes (Death)
  Sender: FDA-Public Use
  Company Number: USA-2005-0021372

PATIENT
  Sex: Male
  Weight: 90.7 kg

DRUGS (4)
  1. OXYCODONE HCL [Suspect]
  2. ETHANOL (ETHANOL) [Suspect]
  3. HYDROCODONE BITARTRATE [Suspect]
  4. OXYMORPHONE HYDROCHLORIDE [Suspect]

REACTIONS (3)
  - ARRHYTHMIA [None]
  - MULTIPLE DRUG OVERDOSE ACCIDENTAL [None]
  - VOMITING [None]
